FAERS Safety Report 18581043 (Version 1)
Quarter: 2020Q4

REPORT INFORMATION
  Report Type: Spontaneous
  Country: PT (occurrence: PT)
  Receive Date: 20201204
  Receipt Date: 20201204
  Transmission Date: 20210114
  Serious: Yes (Hospitalization)
  Sender: FDA-Public Use
  Company Number: PT-STRIDES ARCOLAB LIMITED-2020SP014870

PATIENT
  Sex: Female

DRUGS (2)
  1. ACENOCOUMAROL [Suspect]
     Active Substance: ACENOCOUMAROL
     Indication: DEEP VEIN THROMBOSIS
     Dosage: UNK
     Route: 065
  2. AMLODIPINE [Suspect]
     Active Substance: AMLODIPINE BESYLATE
     Indication: HYPERTENSION
     Dosage: UNK
     Route: 065

REACTIONS (8)
  - Necrosis [Recovered/Resolved]
  - Subdural haemorrhage [Recovered/Resolved]
  - Headache [Recovered/Resolved]
  - Central nervous system lesion [Recovered/Resolved]
  - Fibrosis [Recovered/Resolved]
  - Meningioma [Recovered/Resolved]
  - Subdural haematoma [Recovered/Resolved]
  - Bone hypertrophy [Recovered/Resolved]
